FAERS Safety Report 9342793 (Version 1)
Quarter: 2013Q2

REPORT INFORMATION
  Report Type: Spontaneous
  Country: GB (occurrence: GB)
  Receive Date: 20130611
  Receipt Date: 20130611
  Transmission Date: 20140414
  Serious: Yes (Other)
  Sender: FDA-Public Use
  Company Number: GB-TEVA-410762ISR

PATIENT
  Sex: Female

DRUGS (1)
  1. VERAPAMIL [Suspect]
     Route: 048
     Dates: end: 20130517

REACTIONS (3)
  - Bradycardia [Recovered/Resolved]
  - Circulatory collapse [Unknown]
  - Blood lactic acid increased [Unknown]
